FAERS Safety Report 8273561-2 (Version None)
Quarter: 2012Q2

REPORT INFORMATION
  Report Type: 
  Country: None (occurrence: None)
  Receive Date: 20120411
  Receipt Date: 20120116
  Transmission Date: 20120825
  Serious: No
  Sender: FDA-Public Use
  Company Number: US-TEVA-317789USA

PATIENT
  Sex: Female

DRUGS (1)
  1. NUVIGIL [Suspect]
     Route: 048

REACTIONS (8)
  - RASH [None]
  - NERVOUSNESS [None]
  - THIRST [None]
  - ORAL DISCOMFORT [None]
  - DRY MOUTH [None]
  - HEADACHE [None]
  - POLLAKIURIA [None]
  - APHTHOUS STOMATITIS [None]
